FAERS Safety Report 22177609 (Version 2)
Quarter: 2023Q2

REPORT INFORMATION
  Report Type: Spontaneous
  Country: AU (occurrence: AU)
  Receive Date: 20230405
  Receipt Date: 20230417
  Transmission Date: 20230721
  Serious: Yes (Hospitalization, Other)
  Sender: FDA-Public Use
  Company Number: AU-BAXTER-2023BAX016809

PATIENT
  Age: 27 Year
  Sex: Female

DRUGS (14)
  1. WATER FOR INJECTION [Suspect]
     Active Substance: WATER
     Indication: Parenteral nutrition
     Dosage: UNK
     Route: 042
  2. OLIVE OIL\SOYBEAN OIL [Suspect]
     Active Substance: OLIVE OIL\SOYBEAN OIL
     Indication: Parenteral nutrition
     Dosage: UNK
     Route: 042
  3. SYNTHAMIN [Suspect]
     Active Substance: AMINO ACIDS
     Indication: Parenteral nutrition
     Dosage: UNK
     Route: 042
  4. CERNEVIT [Suspect]
     Active Substance: VITAMINS
     Indication: Parenteral nutrition
     Route: 042
  5. DEXTROSE [Suspect]
     Active Substance: DEXTROSE\DEXTROSE MONOHYDRATE
     Indication: Parenteral nutrition
     Route: 042
  6. WATER FOR INJECTION [Suspect]
     Active Substance: WATER
     Indication: Parenteral nutrition
     Dosage: UNK
     Route: 042
  7. POTASSIUM PHOSPHATE, MONOBASIC [Suspect]
     Active Substance: POTASSIUM PHOSPHATE, MONOBASIC
     Indication: Parenteral nutrition
     Dosage: UNK
     Route: 042
  8. SODIUM ACETATE [Suspect]
     Active Substance: SODIUM ACETATE
     Indication: Parenteral nutrition
     Dosage: UNK
     Route: 042
  9. SODIUM CHLORIDE [Suspect]
     Active Substance: SODIUM CHLORIDE
     Indication: Parenteral nutrition
     Dosage: UNK
     Route: 042
  10. POTASSIUM CHLORIDE [Suspect]
     Active Substance: POTASSIUM CHLORIDE
     Indication: Parenteral nutrition
     Dosage: UNK
     Route: 042
  11. MAGNESIUM SULFATE [Suspect]
     Active Substance: MAGNESIUM SULFATE
     Indication: Parenteral nutrition
     Dosage: UNK
     Route: 042
  12. UNSPECIFIED INGREDIENT [Suspect]
     Active Substance: UNSPECIFIED INGREDIENT
     Indication: Parenteral nutrition
     Dosage: UNK
     Route: 042
  13. CALCIUM GLUCONATE [Suspect]
     Active Substance: CALCIUM GLUCONATE
     Indication: Parenteral nutrition
     Dosage: UNK
     Route: 042
  14. TAUROLIDINE [Suspect]
     Active Substance: TAUROLIDINE
     Indication: Parenteral nutrition
     Dosage: 3 ML
     Route: 042

REACTIONS (5)
  - Anaphylactic reaction [Recovering/Resolving]
  - Rash [Recovering/Resolving]
  - Feeling hot [Recovering/Resolving]
  - Urticaria [Recovering/Resolving]
  - Throat tightness [Recovering/Resolving]

NARRATIVE: CASE EVENT DATE: 20230326
